FAERS Safety Report 6407362-4 (Version None)
Quarter: 2009Q4

REPORT INFORMATION
  Report Type: 
  Country: None (occurrence: None)
  Receive Date: 20091014
  Receipt Date: 20090929
  Transmission Date: 20100525
  Serious: Yes (Other)
  Sender: FDA-Public Use
  Company Number: 8052842

PATIENT
  Age: 15 Year
  Sex: Male

DRUGS (4)
  1. PREDNISOLONE [Suspect]
  2. CYCLOPHOSPHAMIDE [Suspect]
  3. DOXORUBICIN HCL [Suspect]
  4. VINCRISTINE [Suspect]

REACTIONS (2)
  - FACIAL PALSY [None]
  - THERAPEUTIC AGENT TOXICITY [None]
